FAERS Safety Report 22384539 (Version 1)
Quarter: 2023Q2

REPORT INFORMATION
  Report Type: Spontaneous
  Country: US (occurrence: US)
  Receive Date: 20230530
  Receipt Date: 20230530
  Transmission Date: 20230722
  Serious: No
  Sender: FDA-Public Use
  Company Number: US-PERRIGO-23US003759

PATIENT
  Age: 72 Year
  Sex: Male
  Weight: 85.714 kg

DRUGS (2)
  1. MINOXIDIL [Suspect]
     Active Substance: MINOXIDIL
     Indication: Alopecia
     Dosage: MORE THAN 1/2 CAPFUL, BID
     Route: 061
     Dates: start: 20230308, end: 20230319
  2. MINOXIDIL [Suspect]
     Active Substance: MINOXIDIL
     Dosage: MORE THAN 1/2 CAPFUL, QHS
     Route: 061
     Dates: start: 20230301, end: 20230307

REACTIONS (8)
  - Application site scab [Recovering/Resolving]
  - Application site acne [Recovering/Resolving]
  - Application site discolouration [Recovering/Resolving]
  - Application site pain [Recovered/Resolved]
  - Application site pruritus [Recovered/Resolved]
  - Product administered at inappropriate site [Recovered/Resolved]
  - Inappropriate schedule of product administration [Recovered/Resolved]
  - Incorrect dose administered [Recovered/Resolved]

NARRATIVE: CASE EVENT DATE: 20230301
